FAERS Safety Report 6818383-1 (Version None)
Quarter: 2010Q3

REPORT INFORMATION
  Report Type: 
  Country: None (occurrence: None)
  Receive Date: 20100706
  Receipt Date: 20080203
  Transmission Date: 20110219
  Serious: No
  Sender: FDA-Public Use
  Company Number: US-PFIZER INC-2008011051

PATIENT
  Sex: Female
  Weight: 56.8 kg

DRUGS (1)
  1. ZITHROMAX [Suspect]
     Indication: SINUSITIS
     Dates: start: 20080201

REACTIONS (1)
  - ABDOMINAL DISCOMFORT [None]
